FAERS Safety Report 8023756-8 (Version None)
Quarter: 2012Q1

REPORT INFORMATION
  Report Type: 
  Country: None (occurrence: None)
  Receive Date: 20120105
  Receipt Date: 20111228
  Transmission Date: 20120608
  Serious: Yes (Life-Threatening, Disabling)
  Sender: FDA-Public Use
  Company Number: DK-ELI_LILLY_AND_COMPANY-DK201201000173

PATIENT

DRUGS (4)
  1. TRILAFON [Concomitant]
     Indication: PSYCHOTIC DISORDER
     Dosage: 2 MG, QD
     Route: 064
  2. TRILAFON [Concomitant]
     Dosage: 2 MG, QD
     Route: 064
  3. FLUOXETINE HCL [Suspect]
     Indication: DEPRESSION
     Dosage: 60 MG, QD
     Route: 064
  4. FLUOXETINE HCL [Suspect]
     Dosage: 60 MG, QD
     Route: 064

REACTIONS (8)
  - NEONATAL ASPHYXIA [None]
  - FOETAL EXPOSURE DURING PREGNANCY [None]
  - FINE MOTOR DELAY [None]
  - SPEECH DISORDER DEVELOPMENTAL [None]
  - ASOCIAL BEHAVIOUR [None]
  - COGNITIVE DISORDER [None]
  - MILD MENTAL RETARDATION [None]
  - HYPOKINESIA [None]
